FAERS Safety Report 18454986 (Version 1)
Quarter: 2020Q4

REPORT INFORMATION
  Report Type: Spontaneous
  Country: US (occurrence: US)
  Receive Date: 20201103
  Receipt Date: 20201103
  Transmission Date: 20210114
  Serious: Yes (Life-Threatening, Hospitalization, Other)
  Sender: FDA-Public Use
  Company Number: US-LUPIN PHARMACEUTICALS INC.-2020-08237

PATIENT
  Age: 23 Year
  Sex: Female

DRUGS (2)
  1. METOPROLOL SUCCINATE. [Suspect]
     Active Substance: METOPROLOL SUCCINATE
     Indication: PRODUCT USED FOR UNKNOWN INDICATION
     Dosage: 60 DOSAGE FORM
     Route: 048
  2. AMLODIPINE [Suspect]
     Active Substance: AMLODIPINE BESYLATE
     Indication: PRODUCT USED FOR UNKNOWN INDICATION
     Dosage: 60 DOSAGE FORM
     Route: 048

REACTIONS (9)
  - Multiple organ dysfunction syndrome [Recovering/Resolving]
  - Toxicity to various agents [Unknown]
  - Lactic acidosis [Recovered/Resolved]
  - Cardiogenic shock [Recovering/Resolving]
  - Intentional overdose [Unknown]
  - Respiratory failure [Recovering/Resolving]
  - Somnolence [Recovering/Resolving]
  - Anuria [Recovering/Resolving]
  - Sinus bradycardia [Recovering/Resolving]
